FAERS Safety Report 19966023 (Version 2)
Quarter: 2021Q4

REPORT INFORMATION
  Report Type: Spontaneous
  Country: US (occurrence: US)
  Receive Date: 20211018
  Receipt Date: 20211201
  Transmission Date: 20220303
  Serious: No
  Sender: FDA-Public Use
  Company Number: US-PFIZER INC-202101318226

PATIENT
  Age: 38 Year
  Sex: Female

DRUGS (2)
  1. XELJANZ [Suspect]
     Active Substance: TOFACITINIB CITRATE
     Indication: Colitis ulcerative
     Dosage: 10 MG, 2X/DAY
     Route: 048
     Dates: start: 20210928
  2. XELJANZ [Suspect]
     Active Substance: TOFACITINIB CITRATE
     Indication: Crohn^s disease

REACTIONS (6)
  - Chromaturia [Unknown]
  - Throat tightness [Unknown]
  - Throat irritation [Unknown]
  - Paraesthesia [Unknown]
  - Depressed mood [Unknown]
  - Product dose omission issue [Unknown]

NARRATIVE: CASE EVENT DATE: 20210101
